FAERS Safety Report 7267141-5 (Version None)
Quarter: 2011Q1

REPORT INFORMATION
  Report Type: 
  Country: None (occurrence: None)
  Receive Date: 20110201
  Receipt Date: 20110120
  Transmission Date: 20110831
  Serious: Yes (Hospitalization)
  Sender: FDA-Public Use
  Company Number: US-CELGENEUS-163-21880-11012681

PATIENT
  Sex: Female
  Weight: 76.3 kg

DRUGS (2)
  1. REVLIMID [Suspect]
     Indication: MULTIPLE MYELOMA
     Route: 048
     Dates: start: 20080201
  2. DEXAMETHASONE [Concomitant]
     Route: 065
     Dates: start: 20080201

REACTIONS (4)
  - HYPERCALCAEMIA [None]
  - BACK PAIN [None]
  - MULTIPLE MYELOMA [None]
  - ABDOMINAL PAIN [None]
